FAERS Safety Report 23822842 (Version 1)
Quarter: 2024Q2

REPORT INFORMATION
  Report Type: Spontaneous
  Country: US (occurrence: US)
  Receive Date: 20240506
  Receipt Date: 20240506
  Transmission Date: 20240715
  Serious: Yes (Hospitalization, Other)
  Sender: FDA-Public Use
  Company Number: US-ABBVIE-5741693

PATIENT
  Sex: Female
  Weight: 93 kg

DRUGS (8)
  1. HUMIRA [Suspect]
     Active Substance: ADALIMUMAB
     Indication: Ankylosing spondylitis
     Dosage: FORM STRENGTH: 40 MILLIGRAM
     Route: 058
     Dates: start: 20240429
  2. HUMIRA [Suspect]
     Active Substance: ADALIMUMAB
     Indication: Osteoarthritis
     Dosage: FORM STRENGTH: 40 MILLIGRAM
     Route: 058
     Dates: start: 201904, end: 201910
  3. HUMIRA [Suspect]
     Active Substance: ADALIMUMAB
     Indication: Rheumatoid arthritis
     Dosage: FORM STRENGTH: 40 MILLIGRAM
     Route: 058
     Dates: start: 201911, end: 202005
  4. HUMIRA [Suspect]
     Active Substance: ADALIMUMAB
     Dosage: FORM STRENGTH: 40 MILLIGRAM
     Route: 058
     Dates: start: 201704, end: 201801
  5. HUMIRA [Suspect]
     Active Substance: ADALIMUMAB
     Dosage: FORM STRENGTH: 40 MILLIGRAM
     Route: 058
     Dates: start: 202006
  6. CELECOXIB [Concomitant]
     Active Substance: CELECOXIB
     Indication: Antiinflammatory therapy
  7. ROSUVASTATIN [Concomitant]
     Active Substance: ROSUVASTATIN
     Indication: Blood cholesterol increased
  8. LEVOTHYROXINE [Concomitant]
     Active Substance: LEVOTHYROXINE\LEVOTHYROXINE SODIUM
     Indication: Thyroid disorder

REACTIONS (14)
  - Osteoarthritis [Recovered/Resolved]
  - Joint stiffness [Recovered/Resolved]
  - Off label use [Not Recovered/Not Resolved]
  - Arthralgia [Recovered/Resolved]
  - Device issue [Recovered/Resolved]
  - Joint swelling [Recovered/Resolved]
  - Arthralgia [Recovered/Resolved]
  - Back pain [Recovering/Resolving]
  - Blood cholesterol increased [Unknown]
  - Joint swelling [Recovered/Resolved]
  - Joint swelling [Not Recovered/Not Resolved]
  - Grip strength decreased [Recovered/Resolved]
  - Arthralgia [Not Recovered/Not Resolved]
  - Carpal tunnel syndrome [Recovered/Resolved]

NARRATIVE: CASE EVENT DATE: 20170101
